FAERS Safety Report 13157901 (Version 1)
Quarter: 2017Q1

REPORT INFORMATION
  Report Type: Spontaneous
  Country: US (occurrence: US)
  Receive Date: 20170127
  Receipt Date: 20170127
  Transmission Date: 20170428
  Serious: No
  Sender: FDA-Public Use
  Company Number: US-009507513-1701USA009929

PATIENT
  Sex: Female

DRUGS (1)
  1. NEXPLANON [Suspect]
     Active Substance: ETONOGESTREL
     Dosage: IMPLANT, UNK
     Route: 059
     Dates: start: 201701

REACTIONS (1)
  - Device deployment issue [Unknown]

NARRATIVE: CASE EVENT DATE: 201701
